FAERS Safety Report 8095591-6 (Version None)
Quarter: 2012Q1

REPORT INFORMATION
  Report Type: 
  Country: None (occurrence: None)
  Receive Date: 20120129
  Receipt Date: 20111229
  Transmission Date: 20120608
  Serious: No
  Sender: FDA-Public Use
  Company Number: US-ABBOTT-11P-163-0887212-00

PATIENT
  Sex: Male
  Weight: 135.29 kg

DRUGS (7)
  1. ENTOCORT EC [Concomitant]
     Indication: CROHN'S DISEASE
  2. ALBUTEROL [Concomitant]
     Indication: ASTHMA
  3. PENTASA [Concomitant]
     Indication: CROHN'S DISEASE
  4. ADAPROLOL [Concomitant]
     Indication: HEART VALVE INCOMPETENCE
  5. HUMIRA [Suspect]
     Indication: CROHN'S DISEASE
     Dates: start: 20110901
  6. PROTONIX [Concomitant]
     Indication: CROHN'S DISEASE
  7. BETHANECHOL [Concomitant]
     Indication: PRODUCT USED FOR UNKNOWN INDICATION

REACTIONS (2)
  - FATIGUE [None]
  - BRONCHITIS [None]
